FAERS Safety Report 6874039-0 (Version None)
Quarter: 2010Q3

REPORT INFORMATION
  Report Type: 
  Country: None (occurrence: None)
  Receive Date: 20100722
  Receipt Date: 20100707
  Transmission Date: 20110219
  Serious: Yes (Other)
  Sender: FDA-Public Use
  Company Number: 1000015135

PATIENT
  Age: 8 Week

DRUGS (1)
  1. ESCITALOPRAM OXALATE [Suspect]
     Dosage: 30 MG (30 MG, 1 IN 1 D), TRANSPLACENTAL; 30 MG (30 MG, 1 IN 1 D), TRANSPLACENTAL
     Route: 064

REACTIONS (5)
  - DRUG EXPOSURE DURING PREGNANCY [None]
  - DRUG EXPOSURE VIA BREAST MILK [None]
  - HYPERREFLEXIA [None]
  - RESTLESSNESS [None]
  - TREMOR [None]
